FAERS Safety Report 24954205 (Version 1)
Quarter: 2025Q1

REPORT INFORMATION
  Report Type: Spontaneous
  Country: GB (occurrence: GB)
  Receive Date: 20250211
  Receipt Date: 20250211
  Transmission Date: 20250408
  Serious: Yes (Other)
  Sender: TEVA
  Company Number: GB-MHRA-TPP18182077C8623610YC1737469854364

PATIENT
  Age: 73 Year
  Sex: Male
  Weight: 115 kg

DRUGS (18)
  1. TAMSULOSIN [Suspect]
     Active Substance: TAMSULOSIN
     Indication: Ill-defined disorder
     Dosage: 400MICROGRAM MODIFIED-RELEASE CAPSULES
     Route: 065
     Dates: start: 20241023
  2. OCTENISAN [Concomitant]
     Indication: Ill-defined disorder
     Route: 065
     Dates: start: 20241029, end: 20241103
  3. OMEPRAZOLE [Concomitant]
     Active Substance: OMEPRAZOLE
     Indication: Ill-defined disorder
     Dosage: TAKE ONE CAPSULE DAILY AS DIRECTED FOR INDIGEST...
     Route: 065
     Dates: start: 20211111
  4. DOXYCYCLINE [Concomitant]
     Active Substance: DOXYCYCLINE
     Indication: Ill-defined disorder
     Route: 065
     Dates: start: 20241025, end: 20241101
  5. ADCAL [Concomitant]
     Indication: Ill-defined disorder
     Dosage: TAKE ONE TABLET TWICE A DAY LUNCHTIME AND TEATIME
     Route: 065
     Dates: start: 20240308
  6. OCTENILIN [Concomitant]
     Indication: Ill-defined disorder
     Route: 065
     Dates: start: 20241125, end: 20241209
  7. CLARITHROMYCIN [Concomitant]
     Active Substance: CLARITHROMYCIN
     Indication: Ill-defined disorder
     Dosage: TAKE ONE EVERY 12 HRS
     Route: 065
     Dates: start: 20250121
  8. APIXABAN [Concomitant]
     Active Substance: APIXABAN
     Indication: Ill-defined disorder
     Dosage: TAKE ONE TABLET TWICE DAILY. (DIRECT ORAL ANTIC...
     Route: 065
     Dates: start: 20211111
  9. INADINE [Concomitant]
     Indication: Ill-defined disorder
     Route: 065
     Dates: start: 20241125, end: 20241209
  10. FUROSEMIDE [Concomitant]
     Active Substance: FUROSEMIDE
     Indication: Ill-defined disorder
     Dosage: TAKE ONE TABLET ONCE A DAY EACH MORNING
     Route: 065
     Dates: start: 20240412
  11. RAMIPRIL [Concomitant]
     Active Substance: RAMIPRIL
     Indication: Ill-defined disorder
     Dosage: AT NIGHT
     Route: 065
     Dates: start: 20231010, end: 20241111
  12. CLOBETASOL PROPIONATE [Concomitant]
     Active Substance: CLOBETASOL PROPIONATE
     Indication: Ill-defined disorder
     Route: 065
     Dates: start: 20241025, end: 20241122
  13. MEDI DERMA-S [Concomitant]
     Indication: Ill-defined disorder
     Route: 065
     Dates: start: 20241125, end: 20241126
  14. DOCUSATE SODIUM [Concomitant]
     Active Substance: DOCUSATE SODIUM
     Indication: Ill-defined disorder
     Dosage: TAKE ONE OR TWO CAPSULES TWICE A DAY WHEN NEEDE...
     Route: 065
     Dates: start: 20240308
  15. OCTENISAN MD [Concomitant]
     Indication: Ill-defined disorder
     Route: 065
     Dates: start: 20241025, end: 20241030
  16. ACTIVA CLASS 1 [Concomitant]
     Indication: Ill-defined disorder
     Route: 065
     Dates: start: 20241118
  17. DERMOL [Concomitant]
     Active Substance: BENZALKONIUM CHLORIDE\CHLORHEXIDINE HYDROCHLORIDE\ISOPROPYL MYRISTATE\PARAFFIN
     Indication: Ill-defined disorder
     Route: 065
     Dates: start: 20241111, end: 20241209
  18. BISOPROLOL [Concomitant]
     Active Substance: BISOPROLOL
     Indication: Ill-defined disorder
     Dosage: TAKE ONE TABLET ONCE A DAY
     Route: 065
     Dates: start: 20211111

REACTIONS (1)
  - Skin reaction [Recovering/Resolving]
